FAERS Safety Report 13452970 (Version 11)
Quarter: 2022Q1

REPORT INFORMATION
  Report Type: Spontaneous
  Country: GB (occurrence: GB)
  Receive Date: 20170418
  Receipt Date: 20220330
  Transmission Date: 20220423
  Serious: Yes (Other)
  Sender: FDA-Public Use
  Company Number: GB-SA-2017SA056430

PATIENT
  Age: 75 Year
  Sex: Female

DRUGS (39)
  1. BISOPROLOL [Suspect]
     Active Substance: BISOPROLOL
     Indication: Product used for unknown indication
     Dosage: (SALT NOT SPECIFIED)
     Route: 065
  2. BISOPROLOL [Suspect]
     Active Substance: BISOPROLOL
     Dosage: (DOSAGE FORM: UNKNOWN)
     Route: 065
  3. BISOPROLOL [Suspect]
     Active Substance: BISOPROLOL
     Dosage: (DOSAGE FORM: UNKNOWN)
     Route: 065
  4. CITALOPRAM [Suspect]
     Active Substance: CITALOPRAM HYDROBROMIDE
     Indication: Product used for unknown indication
     Dosage: 1 DOSAGE FORM, Q2W
     Route: 065
  5. CITALOPRAM [Suspect]
     Active Substance: CITALOPRAM HYDROBROMIDE
     Dosage: UNK
     Route: 065
  6. QUETIAPINE [Suspect]
     Active Substance: QUETIAPINE
     Indication: Product used for unknown indication
     Dosage: 1 DOSAGE FORM, Q2W
     Route: 048
  7. QUETIAPINE [Suspect]
     Active Substance: QUETIAPINE
     Dosage: UNK
     Route: 065
  8. QUETIAPINE [Suspect]
     Active Substance: QUETIAPINE
     Dosage: UNK, Q2W
     Route: 065
  9. LANSOPRAZOLE [Suspect]
     Active Substance: LANSOPRAZOLE
     Indication: Product used for unknown indication
     Dosage: 1 DOSAGE FORM, Q2W
     Route: 065
  10. LANSOPRAZOLE [Suspect]
     Active Substance: LANSOPRAZOLE
     Dosage: UNK
     Route: 065
  11. LANSOPRAZOLE [Suspect]
     Active Substance: LANSOPRAZOLE
     Dosage: UNK, Q2W
     Route: 065
  12. RIVASTIGMINE [Suspect]
     Active Substance: RIVASTIGMINE
     Indication: Product used for unknown indication
     Dosage: 1 DOSAGE FORM, Q2W
     Route: 065
  13. RIVASTIGMINE [Suspect]
     Active Substance: RIVASTIGMINE
     Dosage: (DOSAGE FORM: UNSPECIFIED)
     Route: 065
  14. RIVASTIGMINE [Suspect]
     Active Substance: RIVASTIGMINE
     Dosage: Q2W
     Route: 065
  15. ROPINIROLE [Suspect]
     Active Substance: ROPINIROLE
     Indication: Product used for unknown indication
     Dosage: UNK, Q2W, (UNK UNK,UNK)
     Route: 065
  16. ROPINIROLE [Suspect]
     Active Substance: ROPINIROLE
     Dosage: UNK
     Route: 065
  17. LACTULOSE [Suspect]
     Active Substance: LACTULOSE
     Indication: Product used for unknown indication
     Dosage: UNK (DOSAGE FORM: UNSPECIFIED)
     Route: 065
  18. CEREZYME [Suspect]
     Active Substance: IMIGLUCERASE
     Indication: Product used for unknown indication
     Dosage: 800 INTERNATIONAL UNIT, Q2W
     Route: 041
     Dates: end: 20170315
  19. CEREZYME [Suspect]
     Active Substance: IMIGLUCERASE
     Dosage: 800 INTERNATIONAL UNIT, Q2W
     Route: 041
     Dates: end: 20170329
  20. CEREZYME [Suspect]
     Active Substance: IMIGLUCERASE
     Dosage: 800 INTERNATIONAL UNIT, Q2W/15-MAR-2017
     Route: 041
  21. CEREZYME [Suspect]
     Active Substance: IMIGLUCERASE
     Dosage: 800 DOSAGE FORM, Q2W, (800 DF,QOW)
     Route: 041
     Dates: end: 20210315
  22. CEREZYME [Suspect]
     Active Substance: IMIGLUCERASE
     Dosage: 800 INTERNATIONAL UNIT, Q2W (800 IU, QOW)
     Route: 041
     Dates: end: 20210329
  23. CEREZYME [Suspect]
     Active Substance: IMIGLUCERASE
     Dosage: UNK
     Route: 041
     Dates: end: 20170329
  24. CEREZYME [Suspect]
     Active Substance: IMIGLUCERASE
     Dosage: UNK (800 UNITS 2 ONCE A WEEK)
     Dates: start: 20170315, end: 20170329
  25. BENSERAZIDE HYDROCHLORIDE\LEVODOPA [Suspect]
     Active Substance: BENSERAZIDE HYDROCHLORIDE\LEVODOPA
     Indication: Product used for unknown indication
     Dosage: 1 DOSAGE FORM, Q2W
     Route: 065
  26. BENSERAZIDE HYDROCHLORIDE\LEVODOPA [Suspect]
     Active Substance: BENSERAZIDE HYDROCHLORIDE\LEVODOPA
     Dosage: UNK
     Route: 065
  27. CYCLIZINE [Suspect]
     Active Substance: CYCLIZINE
     Indication: Product used for unknown indication
     Dosage: UNK
     Route: 065
     Dates: end: 20170329
  28. CYCLIZINE [Suspect]
     Active Substance: CYCLIZINE
     Dosage: UNK
     Dates: start: 20170315
  29. CYCLIZINE [Suspect]
     Active Substance: CYCLIZINE
     Dosage: UNK
     Dates: start: 20170329
  30. CYCLIZINE [Suspect]
     Active Substance: CYCLIZINE
     Dosage: UNK (DOSAGE FORM: UNSPECIFIED)
  31. CYCLIZINE [Suspect]
     Active Substance: CYCLIZINE
     Dosage: UNK, Q2W
     Route: 065
     Dates: end: 20170329
  32. CYCLIZINE [Suspect]
     Active Substance: CYCLIZINE
     Dosage: Q2W, (UNK UNK,UNK)
     Route: 065
  33. DOMPERIDONE [Suspect]
     Active Substance: DOMPERIDONE
     Indication: Product used for unknown indication
     Dosage: 1 DOSAGE FORM, Q2W
     Route: 065
     Dates: end: 20170329
  34. DOMPERIDONE [Suspect]
     Active Substance: DOMPERIDONE
     Dosage: UNK
     Dates: end: 20210329
  35. DOMPERIDONE [Suspect]
     Active Substance: DOMPERIDONE
     Dosage: UNK
     Route: 065
     Dates: end: 20170329
  36. SENNA [Suspect]
     Active Substance: SENNA LEAF\SENNOSIDES\SENNOSIDES A AND B
     Indication: Product used for unknown indication
     Dosage: DOSAGE FORM: UNKNOWN
     Route: 065
  37. SENNA [Suspect]
     Active Substance: SENNA LEAF\SENNOSIDES\SENNOSIDES A AND B
     Dosage: 1 DOSAGE FORM, Q2W
     Route: 065
  38. SENNA [Suspect]
     Active Substance: SENNA LEAF\SENNOSIDES\SENNOSIDES A AND B
     Dosage: UNK, Q2W
     Route: 065
  39. BENSERAZIDE HYDROCHLORIDE\LEVODOPA [Concomitant]
     Active Substance: BENSERAZIDE HYDROCHLORIDE\LEVODOPA
     Indication: Product used for unknown indication
     Dosage: UNK
     Route: 065

REACTIONS (2)
  - Parkinson^s disease [Unknown]
  - Dizziness [Unknown]
